FAERS Safety Report 4313752-6 (Version None)
Quarter: 2004Q1

REPORT INFORMATION
  Report Type: 
  Country: None (occurrence: None)
  Receive Date: 20040305
  Receipt Date: 20040126
  Transmission Date: 20041129
  Serious: Yes (Congenital Anomaly)
  Sender: FDA-Public Use
  Company Number: 200400555

PATIENT
  Age: 13 Month
  Sex: Male

DRUGS (1)
  1. BOTOX PURIFIED NEUROTOXIN COMPLEX [Suspect]
     Indication: DRUG EXPOSURE DURING PREGNANCY

REACTIONS (4)
  - BRAIN NEOPLASM BENIGN [None]
  - MATERNAL DRUGS AFFECTING FOETUS [None]
  - NEONATAL DISORDER [None]
  - PREGNANCY [None]
